FAERS Safety Report 12708197 (Version 2)
Quarter: 2017Q1

REPORT INFORMATION
  Report Type: Spontaneous
  Country: US (occurrence: US)
  Receive Date: 20160901
  Receipt Date: 20170330
  Transmission Date: 20170428
  Serious: Yes (Other)
  Sender: FDA-Public Use
  Company Number: US-BAYER-2016-169954

PATIENT
  Age: 26 Year
  Sex: Female

DRUGS (1)
  1. MIRENA [Suspect]
     Active Substance: LEVONORGESTREL
     Dosage: 20 MCG/24HR, CONT
     Route: 015
     Dates: start: 20120125, end: 20120726

REACTIONS (12)
  - Diplopia [None]
  - Headache [None]
  - Dizziness [None]
  - Benign intracranial hypertension [None]
  - Night blindness [None]
  - Nausea [None]
  - Musculoskeletal pain [None]
  - Tinnitus [None]
  - Vision blurred [None]
  - Neck pain [None]
  - Weight increased [None]
  - Amnesia [None]

NARRATIVE: CASE EVENT DATE: 2012
